FAERS Safety Report 4394368-2 (Version None)
Quarter: 2004Q3

REPORT INFORMATION
  Report Type: 
  Country: None (occurrence: None)
  Receive Date: 20040709
  Receipt Date: 20040709
  Transmission Date: 20050211
  Serious: Yes (Hospitalization)
  Sender: FDA-Public Use
  Company Number: None

PATIENT
  Age: 76 Year
  Sex: Male
  Weight: 73.2 kg

DRUGS (13)
  1. GEMCITABINE [Suspect]
     Indication: RENAL CELL CARCINOMA STAGE UNSPECIFIED
     Dosage: 1810 MG IV D1 AND D8
     Route: 042
     Dates: start: 20040610
  2. GEMCITABINE [Suspect]
     Indication: RENAL CELL CARCINOMA STAGE UNSPECIFIED
     Dosage: 1810 MG IV D1 AND D8
     Route: 042
     Dates: start: 20040617
  3. IRINOTECAN [Suspect]
     Indication: RENAL CELL CARCINOMA STAGE UNSPECIFIED
     Dosage: 181 MG IV D1 AND D8
     Route: 042
     Dates: start: 20040610
  4. IRINOTECAN [Suspect]
     Indication: RENAL CELL CARCINOMA STAGE UNSPECIFIED
     Dosage: 181 MG IV D1 AND D8
     Route: 042
     Dates: start: 20040617
  5. COUMADIN [Concomitant]
  6. ALTACE [Concomitant]
  7. LOPRESSOR [Concomitant]
  8. PRAVACHOL [Concomitant]
  9. LASIX [Concomitant]
  10. PROSCAR [Concomitant]
  11. VITAMIN C [Concomitant]
  12. VITAMIN E [Concomitant]
  13. MULTI-VITAMIN [Concomitant]

REACTIONS (5)
  - DEHYDRATION [None]
  - DIABETES MELLITUS [None]
  - FATIGUE [None]
  - HYPONATRAEMIA [None]
  - VOMITING [None]
